FAERS Safety Report 19029184 (Version 1)
Quarter: 2021Q1

REPORT INFORMATION
  Report Type: Spontaneous
  Country: RO (occurrence: RO)
  Receive Date: 20210318
  Receipt Date: 20210318
  Transmission Date: 20210420
  Serious: Yes (Death, Other)
  Sender: FDA-Public Use
  Company Number: RO-B.I. PHARMACEUTICALS,INC./RIDGEFIELD-2021-BI-090624

PATIENT
  Sex: Female

DRUGS (1)
  1. OFEV [Suspect]
     Active Substance: NINTEDANIB
     Indication: IDIOPATHIC PULMONARY FIBROSIS
     Dates: end: 2019

REACTIONS (10)
  - Disease progression [Unknown]
  - Weight decreased [Unknown]
  - Death [Fatal]
  - Vomiting [Unknown]
  - Pleurisy [Unknown]
  - Diarrhoea [Unknown]
  - Drug intolerance [Unknown]
  - Dyspnoea [Unknown]
  - Idiopathic pulmonary fibrosis [Unknown]
  - Patient uncooperative [Unknown]

NARRATIVE: CASE EVENT DATE: 201904
